FAERS Safety Report 8312670-6 (Version None)
Quarter: 2012Q2

REPORT INFORMATION
  Report Type: 
  Country: None (occurrence: None)
  Receive Date: 20120426
  Receipt Date: 20120418
  Transmission Date: 20120825
  Serious: Yes (Other)
  Sender: FDA-Public Use
  Company Number: CA-BRISTOL-MYERS SQUIBB COMPANY-15192123

PATIENT
  Age: 61 Year
  Sex: Female

DRUGS (7)
  1. ORENCIA [Suspect]
     Indication: RHEUMATOID ARTHRITIS
     Dosage: 19APR10,12JUL10. NO OF INF: 9, LAST INF:11JAN2011
     Route: 042
     Dates: start: 20100419, end: 20110111
  2. EFFEXOR [Concomitant]
  3. SYNTHROID [Concomitant]
  4. TYLENOL ARTHRITIS [Concomitant]
  5. PREDNISONE [Concomitant]
  6. LISINOPRIL [Concomitant]
  7. MULTI-VITAMIN [Concomitant]

REACTIONS (5)
  - PARAESTHESIA [None]
  - IMPAIRED HEALING [None]
  - HEADACHE [None]
  - CHRONIC OBSTRUCTIVE PULMONARY DISEASE [None]
  - CYST [None]
